FAERS Safety Report 24118264 (Version 1)
Quarter: 2024Q3

REPORT INFORMATION
  Report Type: Spontaneous
  Country: JP (occurrence: JP)
  Receive Date: 20240722
  Receipt Date: 20240722
  Transmission Date: 20241017
  Serious: Yes (Death, Hospitalization)
  Sender: NOVO NORDISK
  Company Number: JP-NOVOPROD-1257630

PATIENT
  Age: 5 Year
  Sex: Female
  Weight: 19 kg

DRUGS (4)
  1. INSULIN HUMAN [Suspect]
     Active Substance: INSULIN HUMAN
     Indication: Homicide
     Dosage: 70 UNITS, HYPODERMIC INJECTION
     Route: 058
  2. GLYBURIDE [Concomitant]
     Active Substance: GLYBURIDE
     Indication: Homicide
     Dosage: 25 MG
     Route: 048
  3. ESTAZOLAM [Concomitant]
     Active Substance: ESTAZOLAM
     Indication: Homicide
     Dosage: 2MG, 1 TABLET
     Route: 048
  4. HALCION [Concomitant]
     Active Substance: TRIAZOLAM
     Indication: Homicide
     Dosage: 0.75 MG, THREE TABLETS
     Route: 048

REACTIONS (2)
  - Cardio-respiratory arrest [Fatal]
  - Overdose [Fatal]
